FAERS Safety Report 4502576-2 (Version None)
Quarter: 2004Q3

REPORT INFORMATION
  Report Type: 
  Country: None (occurrence: None)
  Receive Date: 20040928
  Receipt Date: 20040720
  Transmission Date: 20050211
  Serious: No
  Sender: FDA-Public Use
  Company Number: 04P-163-0267575-00

PATIENT
  Age: 47 Year
  Sex: Female

DRUGS (6)
  1. HUMIRA [Suspect]
     Indication: MIXED CONNECTIVE TISSUE DISEASE
     Dosage: 40 MG, 1 IN 2 WK, SUBCUTANEOUS
     Route: 058
     Dates: start: 20030701, end: 20040501
  2. LEVOTHYROXINE SODIUM [Concomitant]
  3. RAMIPRIL [Concomitant]
  4. DILTIA [Concomitant]
  5. AMLODIPINE BESYLATE [Concomitant]
  6. ATENOLOL [Concomitant]

REACTIONS (1)
  - INJECTION SITE PAIN [None]
